FAERS Safety Report 5709174-3 (Version None)
Quarter: 2008Q2

REPORT INFORMATION
  Report Type: 
  Country: None (occurrence: None)
  Receive Date: 20080418
  Receipt Date: 20080403
  Transmission Date: 20081010
  Serious: Yes (Hospitalization, Other)
  Sender: FDA-Public Use
  Company Number: US-AMGEN-US272795

PATIENT
  Age: 43 Year
  Sex: Female

DRUGS (1)
  1. EPOGEN [Suspect]
     Indication: DIALYSIS
     Route: 065

REACTIONS (5)
  - CONVULSION [None]
  - GRAND MAL CONVULSION [None]
  - HYPERKALAEMIA [None]
  - HYPERTENSION [None]
  - POLYCYTHAEMIA [None]
